FAERS Safety Report 16897598 (Version 1)
Quarter: 2019Q4

REPORT INFORMATION
  Report Type: Spontaneous
  Country: GB (occurrence: GB)
  Receive Date: 20191009
  Receipt Date: 20191009
  Transmission Date: 20200122
  Serious: Yes (Hospitalization)
  Sender: FDA-Public Use
  Company Number: GB-TEVA-2019-GB-1118256

PATIENT
  Age: 49 Year
  Sex: Male
  Weight: 75 kg

DRUGS (13)
  1. VENLAFAXINE [Suspect]
     Active Substance: VENLAFAXINE HYDROCHLORIDE
     Dosage: 37.5 MILLIGRAM
     Dates: start: 20170115
  2. FLUOXETINE [Concomitant]
     Active Substance: FLUOXETINE HYDROCHLORIDE
     Dosage: IN THE EVENING (1 DOSAGE FORM PER DAY)
     Dates: start: 20190812, end: 20190813
  3. FLUOXETINE [Concomitant]
     Active Substance: FLUOXETINE HYDROCHLORIDE
     Dosage: IN THE MORNING (2 DOSAGE FORM PER DAY)
     Dates: start: 20190812, end: 20190813
  4. DIAZEPAM. [Concomitant]
     Active Substance: DIAZEPAM
     Dosage: 1 DOSAGE FORM
     Dates: start: 20170523
  5. SALBUTAMOL [Concomitant]
     Active Substance: ALBUTEROL
     Dosage: 1-2 PUFFS AS NEEDED
     Dates: start: 20190812, end: 20190813
  6. OMEPRAZOLE. [Concomitant]
     Active Substance: OMEPRAZOLE
     Dosage: 2 DOSAGE FORM PER DAY
     Dates: start: 20190812, end: 20190813
  7. CARBAMAZEPINE. [Concomitant]
     Active Substance: CARBAMAZEPINE
     Dosage: 3 DOSAGE FORM PER DAY
     Dates: start: 20190812, end: 20190813
  8. LEVOMEPROMAZINE [Concomitant]
     Active Substance: LEVOMEPROMAZINE
     Dosage: AT NIGHT (1 DOSAGE FORM PER DAY)
     Dates: start: 20190909
  9. BISOPROLOL [Concomitant]
     Active Substance: BISOPROLOL
     Dosage: 1 DOSAGE FORM PER DAY
     Dates: start: 20190812, end: 20190813
  10. ONDANSETRON [Concomitant]
     Active Substance: ONDANSETRON
     Dosage: THREE TIMES A DAY (1 DOSAGE FORM PER DAY)
     Dates: start: 20190812, end: 20190813
  11. FERROUS FUMARATE [Concomitant]
     Active Substance: FERROUS FUMARATE
     Dosage: 2 DOSAGE FORM PER DAY
     Dates: start: 20190812, end: 20190813
  12. PRIADEL [Concomitant]
     Active Substance: LITHIUM
     Dosage: 1 DOSAGE FORM PER DAY
     Dates: start: 20170223, end: 20190815
  13. PARACETAMOL [Concomitant]
     Active Substance: ACETAMINOPHEN
     Dosage: EVERY 4-6 HOURS UP TO FOUR TIME...(2 DOSAGE FORMS)
     Dates: start: 20190812, end: 20190813

REACTIONS (2)
  - Acute psychosis [Recovering/Resolving]
  - Mania [Unknown]

NARRATIVE: CASE EVENT DATE: 20190913
